FAERS Safety Report 6150668-7 (Version None)
Quarter: 2009Q2

REPORT INFORMATION
  Report Type: 
  Country: None (occurrence: None)
  Receive Date: 20090408
  Receipt Date: 20090408
  Transmission Date: 20091009
  Serious: Yes (Life-Threatening, Hospitalization)
  Sender: FDA-Public Use
  Company Number: None

PATIENT
  Sex: Female
  Weight: 81.6475 kg

DRUGS (2)
  1. ADIPEX [Suspect]
     Indication: OBESITY
     Dosage: 2 PILLS EVERY AM PO
     Route: 048
     Dates: start: 19920101, end: 19921201
  2. ADIPEX [Suspect]
     Indication: OBESITY
     Dosage: 2 PILLS EVERY AM PO
     Route: 048
     Dates: start: 19950101, end: 19951231

REACTIONS (1)
  - PULMONARY HYPERTENSION [None]
